FAERS Safety Report 20333008 (Version 1)
Quarter: 2022Q1

REPORT INFORMATION
  Report Type: Spontaneous
  Country: US (occurrence: US)
  Receive Date: 20220113
  Receipt Date: 20220113
  Transmission Date: 20220424
  Serious: Yes (Hospitalization)
  Sender: FDA-Public Use
  Company Number: US-LANNETT COMPANY, INC.-US-2021LAN000210

PATIENT
  Age: 77 Year
  Sex: Female
  Weight: 64.853 kg

DRUGS (21)
  1. ZAROXOLYN [Suspect]
     Active Substance: METOLAZONE
     Indication: Fluid retention
     Dosage: UNK
     Route: 065
  2. REMODULIN [Suspect]
     Active Substance: TREPROSTINIL
     Indication: Pulmonary arterial hypertension
     Dosage: 0.040 ?G/KG, CONTINUOUS
     Route: 058
     Dates: start: 20090902
  3. SILDENAFIL                         /01367502/ [Concomitant]
     Indication: Product used for unknown indication
     Dosage: UNK
     Route: 065
  4. ELIQUIS [Concomitant]
     Active Substance: APIXABAN
     Indication: Product used for unknown indication
     Dosage: UNK
     Route: 065
  5. PROAIR                             /00139502/ [Concomitant]
     Indication: Product used for unknown indication
     Dosage: UNK
     Route: 065
  6. TYLENOL                            /00020001/ [Concomitant]
     Indication: Product used for unknown indication
     Dosage: UNK
     Route: 065
  7. BREO ELLIPTA [Concomitant]
     Active Substance: FLUTICASONE FUROATE\VILANTEROL TRIFENATATE
     Indication: Product used for unknown indication
     Dosage: UNK
     Route: 065
  8. CALCIUM +D                         /00944201/ [Concomitant]
     Indication: Product used for unknown indication
     Dosage: UNK
     Route: 065
  9. COENZYME Q10 [Concomitant]
     Active Substance: DIETARY SUPPLEMENT\UBIDECARENONE
     Indication: Product used for unknown indication
     Dosage: UNK
     Route: 065
  10. IRON                               /00023503/ [Concomitant]
     Indication: Product used for unknown indication
     Dosage: UNK
     Route: 065
  11. GLIPIZIDE [Concomitant]
     Active Substance: GLIPIZIDE
     Indication: Product used for unknown indication
     Dosage: UNK
     Route: 065
  12. CLARITIN                           /00917501/ [Concomitant]
     Indication: Product used for unknown indication
     Dosage: UNK
     Route: 065
  13. COZAAR [Concomitant]
     Active Substance: LOSARTAN POTASSIUM
     Indication: Product used for unknown indication
     Dosage: UNK
     Route: 065
  14. MAGNESIUM [Concomitant]
     Active Substance: MAGNESIUM
     Indication: Product used for unknown indication
     Dosage: UNK
     Route: 065
  15. PRILOSEC                           /00661201/ [Concomitant]
     Indication: Product used for unknown indication
     Dosage: UNK
     Route: 065
  16. OXYGEN [Concomitant]
     Active Substance: OXYGEN
     Indication: Product used for unknown indication
     Dosage: UNK
     Route: 065
  17. POTASSIUM [Concomitant]
     Active Substance: POTASSIUM
     Indication: Product used for unknown indication
     Dosage: UNK
     Route: 065
  18. LYRICA [Concomitant]
     Active Substance: PREGABALIN
     Indication: Product used for unknown indication
     Dosage: UNK
     Route: 065
  19. ALDACTONE                          /00006201/ [Concomitant]
     Indication: Product used for unknown indication
     Dosage: UNK
     Route: 065
  20. DEMADEX                            /01036501/ [Concomitant]
     Indication: Product used for unknown indication
     Dosage: UNK
     Route: 065
  21. CARDIZEM                           /00489701/ [Concomitant]
     Indication: Product used for unknown indication
     Dosage: UNK
     Route: 065

REACTIONS (3)
  - Hyponatraemia [Unknown]
  - Fluid retention [Unknown]
  - Unintentional medical device removal [Unknown]

NARRATIVE: CASE EVENT DATE: 20210505
